FAERS Safety Report 26111708 (Version 1)
Quarter: 2025Q4

REPORT INFORMATION
  Report Type: Spontaneous
  Country: KR (occurrence: KR)
  Receive Date: 20251202
  Receipt Date: 20251202
  Transmission Date: 20260117
  Serious: Yes (Other)
  Sender: BOEHRINGER INGELHEIM
  Company Number: KR-BoehringerIngelheim-2025-BI-111414

PATIENT
  Age: 84 Year
  Sex: Female
  Weight: 58.25 kg

DRUGS (2)
  1. IPRATROPIUM BROMIDE [Suspect]
     Active Substance: IPRATROPIUM BROMIDE
     Indication: Asthma
     Dates: start: 20211117, end: 20211118
  2. ALBUTEROL SULFATE [Suspect]
     Active Substance: ALBUTEROL SULFATE
     Indication: Asthma
     Dates: start: 20211117, end: 20211118

REACTIONS (2)
  - Convulsions local [Recovering/Resolving]
  - Facial spasm [Recovering/Resolving]

NARRATIVE: CASE EVENT DATE: 20211118
